FAERS Safety Report 15783614 (Version 3)
Quarter: 2019Q1

REPORT INFORMATION
  Report Type: Spontaneous
  Country: US (occurrence: US)
  Receive Date: 20190102
  Receipt Date: 20190212
  Transmission Date: 20190417
  Serious: Yes (Death)
  Sender: FDA-Public Use
  Company Number: US-OTSUKA-2018_040482

PATIENT
  Sex: Female
  Weight: 66.67 kg

DRUGS (1)
  1. NUEDEXTA [Suspect]
     Active Substance: DEXTROMETHORPHAN HYDROBROMIDE\QUINIDINE SULFATE
     Indication: AFFECT LABILITY
     Dosage: UNK
     Route: 065
     Dates: start: 201805, end: 201808

REACTIONS (3)
  - Drug ineffective [Unknown]
  - Hospice care [Unknown]
  - Adult failure to thrive [Fatal]
